FAERS Safety Report 4673666-9 (Version None)
Quarter: 2005Q2

REPORT INFORMATION
  Report Type: 
  Country: None (occurrence: None)
  Receive Date: 20050523
  Receipt Date: 20050414
  Transmission Date: 20051028
  Serious: No
  Sender: FDA-Public Use
  Company Number: MED000087

PATIENT
  Sex: Male

DRUGS (1)
  1. LACTATED RINGER'S AND DEXTROSE 5% IN PLASTIC CONTAINER [Suspect]
     Dosage: 1000 ML; INTRAVENOUS
     Route: 042

REACTIONS (1)
  - PROCEDURAL HYPOTENSION [None]
